FAERS Safety Report 4525982-9 (Version None)
Quarter: 2004Q4

REPORT INFORMATION
  Report Type: 
  Country: None (occurrence: None)
  Receive Date: 20041214
  Receipt Date: 20041202
  Transmission Date: 20050328
  Serious: Yes (Death)
  Sender: FDA-Public Use
  Company Number: CA-JNJFOC-20041201171

PATIENT
  Sex: Female
  Weight: 70 kg

DRUGS (7)
  1. INFLIXIMAB [Suspect]
     Dosage: 4TH DOSE
     Route: 042
  2. INFLIXIMAB [Suspect]
     Route: 042
  3. INFLIXIMAB [Suspect]
     Indication: RHEUMATOID ARTHRITIS
     Route: 042
  4. LOSEC [Concomitant]
  5. REMERON [Concomitant]
  6. PREDNISOLONE [Concomitant]
  7. FOSAMAX [Concomitant]

REACTIONS (12)
  - ABDOMINAL DISCOMFORT [None]
  - ACUTE RESPIRATORY DISTRESS SYNDROME [None]
  - CANDIDIASIS [None]
  - COR PULMONALE [None]
  - DEHYDRATION [None]
  - DIARRHOEA [None]
  - INFECTION [None]
  - MYOCARDIAL INFARCTION [None]
  - PNEUMOTHORAX [None]
  - RESPIRATORY FAILURE [None]
  - RHEUMATOID ARTHRITIS [None]
  - SPUTUM CULTURE POSITIVE [None]
